FAERS Safety Report 22113515 (Version 1)
Quarter: 2023Q1

REPORT INFORMATION
  Report Type: Other
  Country: AU (occurrence: AU)
  Receive Date: 20230320
  Receipt Date: 20230320
  Transmission Date: 20230417
  Serious: Yes (Other)
  Sender: FDA-Public Use
  Company Number: AU-CELLTRION INC.-2023AU005535

PATIENT

DRUGS (4)
  1. INFLIXIMAB [Suspect]
     Active Substance: INFLIXIMAB
     Indication: Product used for unknown indication
  2. HUMIRA [Suspect]
     Active Substance: ADALIMUMAB
     Indication: Product used for unknown indication
  3. RINVOQ [Suspect]
     Active Substance: UPADACITINIB
     Indication: Product used for unknown indication
  4. PREDNISONE [Suspect]
     Active Substance: PREDNISONE
     Indication: Product used for unknown indication

REACTIONS (8)
  - Colitis ulcerative [Unknown]
  - Dehydration [Unknown]
  - Faecal calprotectin increased [Unknown]
  - Frequent bowel movements [Unknown]
  - Inflammation [Unknown]
  - Anxiety [Unknown]
  - Therapeutic product effect decreased [Unknown]
  - Drug ineffective [Unknown]
